FAERS Safety Report 23113065 (Version 2)
Quarter: 2023Q4

REPORT INFORMATION
  Report Type: Spontaneous
  Country: US (occurrence: US)
  Receive Date: 20231027
  Receipt Date: 20231108
  Transmission Date: 20240109
  Serious: Yes (Other)
  Sender: FDA-Public Use
  Company Number: US-BRISTOL-MYERS SQUIBB COMPANY-2023-152450

PATIENT
  Age: 57 Year
  Sex: Female

DRUGS (3)
  1. THALOMID [Suspect]
     Active Substance: THALIDOMIDE
     Indication: Connective tissue disorder
     Dosage: DOSE : 50 MG; FREQ :  NUMBER 56. TAKE ONE TWICE A DAY
     Route: 048
     Dates: start: 20230922
  2. THALOMID [Suspect]
     Active Substance: THALIDOMIDE
  3. ELIQUIS [Concomitant]
     Active Substance: APIXABAN
     Indication: Product used for unknown indication

REACTIONS (3)
  - Bronchitis [Unknown]
  - Pneumonia [Unknown]
  - Off label use [Unknown]
